FAERS Safety Report 6578394-0 (Version None)
Quarter: 2010Q1

REPORT INFORMATION
  Report Type: 
  Country: None (occurrence: None)
  Receive Date: 20100211
  Receipt Date: 20100131
  Transmission Date: 20100710
  Serious: Yes (Hospitalization)
  Sender: FDA-Public Use
  Company Number: NL-MEDIMMUNE-MEDI-0010396

PATIENT
  Sex: Male

DRUGS (2)
  1. SYNAGIS [Suspect]
     Route: 030
     Dates: start: 20091007, end: 20091202
  2. SYNAGIS [Suspect]
     Route: 030
     Dates: start: 20100123, end: 20100123

REACTIONS (1)
  - RESPIRATORY SYNCYTIAL VIRUS INFECTION [None]
